FAERS Safety Report 5622107-3 (Version None)
Quarter: 2008Q1

REPORT INFORMATION
  Report Type: 
  Country: None (occurrence: None)
  Receive Date: 20080211
  Receipt Date: 20080131
  Transmission Date: 20080703
  Serious: Yes (Life-Threatening, Other)
  Sender: FDA-Public Use
  Company Number: JP-TYCO HEALTHCARE/MALLINCKRODT-T200800122

PATIENT

DRUGS (1)
  1. OPTIRAY 300 [Suspect]
     Indication: SCAN BRAIN
     Dosage: 100 ML, SINGLE
     Route: 042
     Dates: start: 20080129, end: 20080129

REACTIONS (6)
  - ABDOMINAL PAIN [None]
  - BLOOD PRESSURE DECREASED [None]
  - COUGH [None]
  - NAUSEA [None]
  - PHARYNGOLARYNGEAL DISCOMFORT [None]
  - SNEEZING [None]
